FAERS Safety Report 18545010 (Version 1)
Quarter: 2020Q4

REPORT INFORMATION
  Report Type: Report from Study
  Country: ES (occurrence: ES)
  Receive Date: 20201125
  Receipt Date: 20201125
  Transmission Date: 20210114
  Serious: Yes (Other)
  Sender: FDA-Public Use
  Company Number: ES-UCBSA-2020047920

PATIENT

DRUGS (1)
  1. BRIVARACETAM [Suspect]
     Active Substance: BRIVARACETAM
     Indication: EPILEPSY
     Dosage: UNK

REACTIONS (7)
  - Irritability [Unknown]
  - Thrombocytopenia [Unknown]
  - Seizure [Unknown]
  - Somnolence [Unknown]
  - Sleep disorder [Unknown]
  - Depression [Unknown]
  - Drug ineffective [Unknown]
